FAERS Safety Report 4557531-3 (Version None)
Quarter: 2005Q1

REPORT INFORMATION
  Report Type: 
  Country: None (occurrence: None)
  Receive Date: 20050120
  Receipt Date: 20041006
  Transmission Date: 20050727
  Serious: Yes (Other)
  Sender: FDA-Public Use
  Company Number: PHEH2004US10797

PATIENT
  Sex: Male
  Weight: 59 kg

DRUGS (1)
  1. MIACALCIN [Suspect]
     Indication: OSTEOPOROSIS
     Dosage: UNK, UNK
     Dates: end: 20040820

REACTIONS (6)
  - CALCIUM METABOLISM DISORDER [None]
  - DRUG INEFFECTIVE [None]
  - INTESTINAL RESECTION [None]
  - MALABSORPTION [None]
  - SPINAL FRACTURE [None]
  - VITAMIN D DECREASED [None]
